FAERS Safety Report 4972737-7 (Version None)
Quarter: 2006Q2

REPORT INFORMATION
  Report Type: 
  Country: None (occurrence: None)
  Receive Date: 20060414
  Receipt Date: 20060405
  Transmission Date: 20061013
  Serious: Yes (Death)
  Sender: FDA-Public Use
  Company Number: US-JNJFOC-20060401617

PATIENT
  Sex: Female
  Weight: 32 kg

DRUGS (4)
  1. REMICADE [Suspect]
     Indication: CROHN'S DISEASE
     Route: 042
  2. PREDNISONE 50MG TAB [Concomitant]
     Indication: CROHN'S DISEASE
  3. TYLENOL (CAPLET) [Concomitant]
     Indication: CROHN'S DISEASE
  4. BENADRYL [Concomitant]
     Indication: CROHN'S DISEASE

REACTIONS (1)
  - DEATH [None]
